FAERS Safety Report 23648038 (Version 1)
Quarter: 2024Q1

REPORT INFORMATION
  Report Type: Spontaneous
  Country: CN (occurrence: CN)
  Receive Date: 20240319
  Receipt Date: 20240319
  Transmission Date: 20240410
  Serious: Yes (Disabling)
  Sender: FDA-Public Use
  Company Number: CN-HUTCHMED LIMITED-HMP2024CN00523

PATIENT
  Age: 75 Year
  Sex: Male
  Weight: 60 kg

DRUGS (5)
  1. FRUQUINTINIB [Suspect]
     Active Substance: FRUQUINTINIB
     Indication: Adenocarcinoma of colon
     Dosage: 4 MILLIGRAM, QD
     Route: 048
     Dates: start: 20231120
  2. FRUQUINTINIB [Suspect]
     Active Substance: FRUQUINTINIB
     Dosage: 3 MILLIGRAM, QD
     Route: 048
     Dates: start: 20240123, end: 20240213
  3. SINTILIMAB [Concomitant]
     Active Substance: SINTILIMAB
     Indication: Adenocarcinoma of colon
     Dosage: 200 MILLIGRAM
     Route: 041
     Dates: start: 20231120, end: 20231120
  4. SINTILIMAB [Concomitant]
     Active Substance: SINTILIMAB
     Dosage: 200 MILLIGRAM
     Route: 041
     Dates: start: 20231219, end: 20231219
  5. SINTILIMAB [Concomitant]
     Active Substance: SINTILIMAB
     Dosage: 200 MILLIGRAM
     Route: 041
     Dates: start: 20240121, end: 20240121

REACTIONS (3)
  - Anaemia [Unknown]
  - Platelet count decreased [Unknown]
  - Asthenia [Unknown]

NARRATIVE: CASE EVENT DATE: 20240229
